FAERS Safety Report 9588307 (Version 1)
Quarter: 2013Q4

REPORT INFORMATION
  Report Type: Spontaneous
  Country: US (occurrence: US)
  Receive Date: 20131003
  Receipt Date: 20131003
  Transmission Date: 20140711
  Serious: No
  Sender: FDA-Public Use
  Company Number: US-AMGEN-USASP2012063688

PATIENT
  Age: 73 Year
  Sex: Female
  Weight: 47.27 kg

DRUGS (11)
  1. ENBREL [Suspect]
     Indication: PRODUCT USED FOR UNKNOWN INDICATION
     Dosage: 50 MG, QWK
     Route: 058
  2. CALCIUM D                          /00944201/ [Concomitant]
     Dosage: UNK
  3. OXYCODONE [Concomitant]
     Dosage: 5 MG, UNK
  4. OXYCONTIN [Concomitant]
     Dosage: 10 MG, UNK
  5. LEFLUNOMIDE [Concomitant]
     Dosage: 20 MG, UNK
  6. OMEPRAZOLE [Concomitant]
     Dosage: 10 MG, UNK
  7. PREDNISONE [Concomitant]
     Dosage: 5 MG, UNK
  8. GABAPENTIN [Concomitant]
     Dosage: 100 MG, UNK
  9. BACTRIM [Concomitant]
     Dosage: 400-80MG
  10. MULTI [Concomitant]
     Dosage: UNK
  11. ZOLPIDEM [Concomitant]
     Dosage: 10 MG, UNK

REACTIONS (1)
  - Post procedural infection [Unknown]
